FAERS Safety Report 7114200-3 (Version None)
Quarter: 2010Q4

REPORT INFORMATION
  Report Type: 
  Country: None (occurrence: None)
  Receive Date: 20101119
  Receipt Date: 20101110
  Transmission Date: 20110411
  Serious: Yes (Death, Hospitalization)
  Sender: FDA-Public Use
  Company Number: GB-JNJFOC-20031002441

PATIENT
  Sex: Female

DRUGS (7)
  1. REMICADE [Suspect]
     Indication: RHEUMATOID ARTHRITIS
     Route: 042
  2. REMICADE [Suspect]
     Route: 042
  3. ASPIRIN [Concomitant]
  4. BISOPROLOL FUMARATE [Concomitant]
  5. CO-DRYDAMOL [Concomitant]
  6. DOXAZOSIN MESYLATE [Concomitant]
  7. LANSOPRAZOLE [Concomitant]

REACTIONS (7)
  - CARDIOPULMONARY FAILURE [None]
  - DISSEMINATED TUBERCULOSIS [None]
  - FUNGAL SEPSIS [None]
  - OESOPHAGEAL CANDIDIASIS [None]
  - RENAL FAILURE [None]
  - STAPHYLOCOCCAL SEPSIS [None]
  - VOMITING [None]
